FAERS Safety Report 8169803-4 (Version None)
Quarter: 2012Q1

REPORT INFORMATION
  Report Type: 
  Country: None (occurrence: None)
  Receive Date: 20120228
  Receipt Date: 20120217
  Transmission Date: 20120608
  Serious: Yes (Hospitalization, Other)
  Sender: FDA-Public Use
  Company Number: SE-BRISTOL-MYERS SQUIBB COMPANY-15678352

PATIENT
  Age: 77 Year
  Sex: Male

DRUGS (9)
  1. PREDNISOLONE [Concomitant]
     Indication: ARTHRITIS REACTIVE
     Route: 048
     Dates: start: 20110420
  2. HYDROXOCOBALAMIN [Concomitant]
     Indication: VITAMIN B12 DEFICIENCY
     Route: 048
  3. METFORMIN HCL [Suspect]
     Indication: DIABETES MELLITUS
  4. WARFARIN SODIUM [Concomitant]
     Indication: COAGULOPATHY
     Route: 048
  5. NOVOMIX [Suspect]
     Indication: DIABETES MELLITUS
  6. OMEPRAZOLE [Concomitant]
     Indication: GASTRITIS
     Route: 048
  7. BLINDED: SAXAGLIPTIN [Suspect]
     Indication: TYPE 2 DIABETES MELLITUS
     Dosage: INTERRUPTED ON 12APR11 RESTARTED ON 03MAY11.
     Dates: start: 20110126
  8. BLINDED: PLACEBO [Suspect]
     Indication: TYPE 2 DIABETES MELLITUS
     Dates: start: 20110126
  9. DOXYFERM [Concomitant]
     Indication: COUGH
     Route: 048
     Dates: start: 20110414, end: 20110424

REACTIONS (2)
  - ERYSIPELAS [None]
  - OESOPHAGEAL CANDIDIASIS [None]
